FAERS Safety Report 23587310 (Version 1)
Quarter: 2024Q1

REPORT INFORMATION
  Report Type: Spontaneous
  Country: US (occurrence: US)
  Receive Date: 20240301
  Receipt Date: 20240301
  Transmission Date: 20240410
  Serious: No
  Sender: FDA-Public Use
  Company Number: US-ABBVIE-5655966

PATIENT
  Age: 23 Year
  Sex: Female
  Weight: 63 kg

DRUGS (2)
  1. INFED [Suspect]
     Active Substance: IRON DEXTRAN
     Indication: Iron deficiency anaemia
     Dosage: FORM STRENGTH: 50 MILLIGRAM
     Route: 042
     Dates: start: 20240223, end: 20240223
  2. VITAMIN B12 [Concomitant]
     Active Substance: CYANOCOBALAMIN
     Indication: Vitamin B12 deficiency

REACTIONS (3)
  - Throat tightness [Recovered/Resolved]
  - Maternal exposure during pregnancy [Unknown]
  - Flushing [Recovered/Resolved]

NARRATIVE: CASE EVENT DATE: 20240223
